FAERS Safety Report 18257930 (Version 1)
Quarter: 2020Q3

REPORT INFORMATION
  Report Type: Spontaneous
  Country: US (occurrence: US)
  Receive Date: 20200911
  Receipt Date: 20200911
  Transmission Date: 20201103
  Serious: Yes (Other)
  Sender: FDA-Public Use
  Company Number: US-PFIZER INC-2020348516

PATIENT
  Age: 62 Year
  Sex: Male
  Weight: 99.79 kg

DRUGS (2)
  1. GABAPENTIN. [Suspect]
     Active Substance: GABAPENTIN
     Indication: CARPAL TUNNEL SYNDROME
     Dosage: 325 MG, 1X/DAY (ONE PILL PER DAY, HE KEPT TAKING IT EVERY NIGHT BEFORE HE WENT TO BED)
  2. ZYRTEC [Concomitant]
     Active Substance: CETIRIZINE HYDROCHLORIDE
     Indication: HYPERSENSITIVITY
     Dosage: 10 MG, DAILY

REACTIONS (11)
  - Off label use [Unknown]
  - Dyspnoea [Recovered/Resolved]
  - Movement disorder [Unknown]
  - Back pain [Unknown]
  - Peripheral swelling [Unknown]
  - Fall [Unknown]
  - Rhabdomyolysis [Unknown]
  - Pain in extremity [Unknown]
  - Product use in unapproved indication [Unknown]
  - Hyperhidrosis [Recovered/Resolved]
  - Gait inability [Recovered/Resolved]

NARRATIVE: CASE EVENT DATE: 2019
